FAERS Safety Report 10661650 (Version 2)
Quarter: 2016Q4

REPORT INFORMATION
  Report Type: Spontaneous
  Country: US (occurrence: US)
  Receive Date: 20141218
  Receipt Date: 20161118
  Transmission Date: 20170206
  Serious: Yes (Hospitalization, Other)
  Sender: FDA-Public Use
  Company Number: US-PFIZER INC-2014345685

PATIENT
  Age: 78 Year
  Sex: Female
  Weight: 73.94 kg

DRUGS (5)
  1. CARVEDILOL. [Concomitant]
     Active Substance: CARVEDILOL
     Indication: SLEEP APNOEA SYNDROME
     Dosage: 3.125 MG (HALF OF 6.25 MG TABLET) TWO TIMES A DAY, IN THE MORNING AND AT NIGHT
  2. AMLODIPINE BESYLATE. [Concomitant]
     Active Substance: AMLODIPINE BESYLATE
     Dosage: 10 MG, 1X/DAY
  3. ADVAIR HFA [Concomitant]
     Active Substance: FLUTICASONE PROPIONATE\SALMETEROL XINAFOATE
     Dosage: (^100/50^ 2 PUFFS), 2X/DAY
  4. REVATIO [Suspect]
     Active Substance: SILDENAFIL CITRATE
     Indication: PULMONARY HYPERTENSION
     Dosage: 60 MG, 3X/DAY
     Route: 048
     Dates: start: 201205
  5. CALCIUM [Concomitant]
     Active Substance: CALCIUM
     Dosage: TWO 667 MG CAPSULES WITH EACH MEAL

REACTIONS (4)
  - Pulmonary hypertension [Unknown]
  - Arteriovenous fistula site complication [Recovering/Resolving]
  - Product use issue [Unknown]
  - Renal failure [Unknown]

NARRATIVE: CASE EVENT DATE: 201205
